FAERS Safety Report 10183228 (Version 2)
Quarter: 2014Q2

REPORT INFORMATION
  Report Type: Spontaneous
  Country: GB (occurrence: GB)
  Receive Date: 20140520
  Receipt Date: 20140605
  Transmission Date: 20141212
  Serious: Yes (Other)
  Sender: FDA-Public Use
  Company Number: GB-PFIZER INC-2014135820

PATIENT
  Age: 50 Year
  Sex: Female

DRUGS (9)
  1. CHAMPIX [Suspect]
     Indication: SMOKING CESSATION THERAPY
     Dosage: 500 UG, 1X/DAY FOR 3 DAYS
     Route: 048
     Dates: start: 20140224, end: 20140226
  2. CHAMPIX [Suspect]
     Dosage: 500 UG, 2X/DAY FOR 4 DAYS
     Route: 048
     Dates: start: 20140227, end: 20140302
  3. CHAMPIX [Suspect]
     Dosage: 1 MG, 2X/DAY
     Route: 048
     Dates: start: 20140303, end: 20140501
  4. ADCAL-D3 [Concomitant]
     Dosage: UNK
  5. FLUOXETINE [Concomitant]
     Dosage: UNK
  6. FOLIC ACID [Concomitant]
     Dosage: UNK
  7. LOPERAMIDE [Concomitant]
     Dosage: UNK
  8. TIOTROPIUM BROMIDE [Concomitant]
     Dosage: UNK
  9. VITAMIN PP [Concomitant]
     Dosage: UNK

REACTIONS (4)
  - Platelet count decreased [Not Recovered/Not Resolved]
  - Contusion [Not Recovered/Not Resolved]
  - Coagulation time prolonged [Not Recovered/Not Resolved]
  - Increased tendency to bruise [Not Recovered/Not Resolved]
